FAERS Safety Report 6941967-7 (Version None)
Quarter: 2010Q3

REPORT INFORMATION
  Report Type: 
  Country: None (occurrence: None)
  Receive Date: 20100826
  Receipt Date: 20100812
  Transmission Date: 20110219
  Serious: Yes (Hospitalization)
  Sender: FDA-Public Use
  Company Number: GB-RANBAXY-2010RR-37208

PATIENT
  Age: 41 Year
  Sex: Male

DRUGS (8)
  1. FUROSEMIDE [Suspect]
     Indication: CONGESTIVE CARDIOMYOPATHY
     Dosage: 80 MG, BID
  2. INDOMETHACIN SODIUM [Suspect]
     Indication: GOUT
     Dosage: 25 MG, TID
  3. RAMIPRIL [Suspect]
     Indication: CONGESTIVE CARDIOMYOPATHY
     Dosage: 10 MG, QD
  4. AMIODARONE [Concomitant]
     Indication: CONGESTIVE CARDIOMYOPATHY
     Dosage: 200 MG, QD
  5. BISOPROLOL [Concomitant]
     Indication: CONGESTIVE CARDIOMYOPATHY
     Dosage: 10 MG, QD
  6. METOLAZONE [Concomitant]
     Indication: FLUID RETENTION
     Dosage: 2.5 MG, QD
  7. SPIRONOLACTONE [Concomitant]
     Indication: FLUID RETENTION
  8. WARFARIN SODIUM [Concomitant]
     Indication: CONGESTIVE CARDIOMYOPATHY

REACTIONS (4)
  - DEAFNESS NEUROSENSORY [None]
  - FLUID RETENTION [None]
  - GOUT [None]
  - RENAL FAILURE ACUTE [None]
